APPROVED DRUG PRODUCT: NALOXONE HYDROCHLORIDE
Active Ingredient: NALOXONE HYDROCHLORIDE
Strength: 0.4MG/ML
Dosage Form/Route: INJECTABLE;INJECTION
Application: A207846 | Product #001
Applicant: CHARTWELL RX SCIENCES LLC
Approved: Dec 17, 2018 | RLD: No | RS: No | Type: DISCN